FAERS Safety Report 23806554 (Version 1)
Quarter: 2024Q2

REPORT INFORMATION
  Report Type: Spontaneous
  Country: US (occurrence: US)
  Receive Date: 20240502
  Receipt Date: 20240502
  Transmission Date: 20240715
  Serious: Yes (Hospitalization)
  Sender: FDA-Public Use
  Company Number: US-TAKEDA-2024TUS041162

PATIENT
  Age: 13 Year
  Sex: Female
  Weight: 65 kg

DRUGS (2)
  1. LIVTENCITY [Suspect]
     Active Substance: MARIBAVIR
     Indication: Leukaemia
     Dosage: 400 MILLIGRAM, BID
     Route: 065
     Dates: start: 20240304
  2. LIVTENCITY [Suspect]
     Active Substance: MARIBAVIR
     Indication: Bone marrow transplant

REACTIONS (2)
  - Viral infection [Not Recovered/Not Resolved]
  - Product use in unapproved indication [Unknown]

NARRATIVE: CASE EVENT DATE: 20240304
